FAERS Safety Report 14924701 (Version 1)
Quarter: 2018Q2

REPORT INFORMATION
  Report Type: Spontaneous
  Country: BR (occurrence: BR)
  Receive Date: 20180522
  Receipt Date: 20180522
  Transmission Date: 20180711
  Serious: Yes (Other)
  Sender: FDA-Public Use
  Company Number: PHHY2018BR001678

PATIENT
  Sex: Male
  Weight: 47 kg

DRUGS (1)
  1. FORASEQ [Suspect]
     Active Substance: BUDESONIDE\FORMOTEROL FUMARATE
     Indication: EMPHYSEMA
     Dosage: 1 DF, BID (1 IN MORNING, 1 IN  THE AFERNOON)
     Route: 055

REACTIONS (5)
  - Inappropriate schedule of drug administration [Unknown]
  - Drug dependence [Unknown]
  - Wrong technique in product usage process [Unknown]
  - Underdose [Unknown]
  - Device malfunction [Unknown]
